FAERS Safety Report 13865903 (Version 1)
Quarter: 2017Q3

REPORT INFORMATION
  Report Type: Spontaneous
  Country: US (occurrence: US)
  Receive Date: 20170814
  Receipt Date: 20170814
  Transmission Date: 20171127
  Serious: No
  Sender: FDA-Public Use
  Company Number: US-ROCHE-676229

PATIENT
  Age: 65 Year
  Sex: Male
  Weight: 71.7 kg

DRUGS (1)
  1. TAMIFLU [Suspect]
     Active Substance: OSELTAMIVIR PHOSPHATE
     Indication: PRODUCT USED FOR UNKNOWN INDICATION
     Route: 048
     Dates: start: 20091215, end: 20091219

REACTIONS (1)
  - Rash [Unknown]

NARRATIVE: CASE EVENT DATE: 20091219
